FAERS Safety Report 10161786 (Version 2)
Quarter: 2014Q2

REPORT INFORMATION
  Report Type: Spontaneous
  Country: IT (occurrence: IT)
  Receive Date: 20140509
  Receipt Date: 20140612
  Transmission Date: 20141212
  Serious: Yes (Hospitalization)
  Sender: FDA-Public Use
  Company Number: IT-009507513-1405ITA004168

PATIENT
  Age: 65 Year
  Sex: Male

DRUGS (4)
  1. THERAPY UNSPECIFIED [Suspect]
     Indication: CHRONIC HEPATITIS C
     Dosage: 1200MG DAILY
     Route: 048
     Dates: start: 201303
  2. PEGASYS [Suspect]
     Indication: CHRONIC HEPATITIS C
     Dosage: 180 MICROGRAM, QW
     Dates: start: 201303
  3. TELAPREVIR [Suspect]
     Dosage: 2250MG DAILY
     Dates: start: 201303
  4. COPEGUS [Suspect]
     Indication: CHRONIC HEPATITIS C
     Dosage: 1200MG DAILY
     Route: 048
     Dates: start: 201303

REACTIONS (1)
  - Pneumonia legionella [Recovered/Resolved]
